FAERS Safety Report 5604273-9 (Version None)
Quarter: 2008Q1

REPORT INFORMATION
  Report Type: 
  Country: None (occurrence: None)
  Receive Date: 20080128
  Receipt Date: 20080125
  Transmission Date: 20080703
  Serious: Yes (Other)
  Sender: FDA-Public Use
  Company Number: A0705279A

PATIENT
  Age: 43 Year
  Sex: Female
  Weight: 76.8 kg

DRUGS (3)
  1. ALLI [Suspect]
     Indication: WEIGHT LOSS DIET
     Dosage: 1CAP TWICE PER DAY
     Route: 048
     Dates: start: 20070902
  2. PERCOCET [Suspect]
     Indication: PAIN
     Route: 048
  3. WELLBUTRIN [Concomitant]

REACTIONS (11)
  - ABDOMINAL HERNIA [None]
  - ANAL HAEMORRHAGE [None]
  - FEAR [None]
  - FLATULENCE [None]
  - HAEMORRHOIDS [None]
  - NAUSEA [None]
  - NERVOUSNESS [None]
  - PAIN [None]
  - RECTAL DISCHARGE [None]
  - RECTAL HAEMORRHAGE [None]
  - STOMACH DISCOMFORT [None]
